FAERS Safety Report 9664942 (Version 1)
Quarter: 2013Q4

REPORT INFORMATION
  Report Type: Spontaneous
  Country: FR (occurrence: FR)
  Receive Date: 20131101
  Receipt Date: 20131101
  Transmission Date: 20140711
  Serious: Yes (Hospitalization, Other)
  Sender: FDA-Public Use
  Company Number: FR-ABBVIE-13P-056-1162188-00

PATIENT
  Age: 48 Year
  Sex: Female

DRUGS (9)
  1. KALETRA [Suspect]
     Indication: HIV INFECTION
     Route: 048
     Dates: end: 20130605
  2. KALETRA [Interacting]
     Dates: start: 20130705
  3. TAXOTERE [Interacting]
     Indication: BREAST CANCER
     Dosage: ONE SINGLE INTAKE
     Route: 042
     Dates: start: 20130527, end: 20130527
  4. CYCLOPHOSPHAMIDE [Concomitant]
     Indication: BREAST CANCER
     Dosage: ONE SINGLE INTAKE
     Route: 042
     Dates: start: 20130527, end: 20130527
  5. ADRIBLASTINE [Concomitant]
     Indication: BREAST CANCER
     Dosage: ONE SINGLE INTAKE
     Route: 042
     Dates: start: 20130527, end: 20130527
  6. ISENTRESS [Concomitant]
     Indication: HIV INFECTION
     Route: 048
     Dates: end: 20130605
  7. ISENTRESS [Concomitant]
     Dates: start: 20130705
  8. EPIVIR [Concomitant]
     Indication: HIV INFECTION
     Route: 048
     Dates: end: 20130605
  9. EPIVIR [Concomitant]
     Dates: start: 20130705

REACTIONS (30)
  - Pain [Recovered/Resolved]
  - Mucosal inflammation [Recovered/Resolved]
  - Pancytopenia [Recovered/Resolved]
  - Colitis [Recovered/Resolved]
  - Ileus paralytic [Recovered/Resolved]
  - Interstitial lung disease [Recovered/Resolved]
  - Palmar-plantar erythrodysaesthesia syndrome [Recovered/Resolved]
  - Hyponatraemia [Recovered/Resolved]
  - Hypokalaemia [Recovered/Resolved]
  - Invasive ductal breast carcinoma [Unknown]
  - Clostridium difficile infection [Unknown]
  - Hepatic cirrhosis [Unknown]
  - Respiratory distress [Unknown]
  - Cardiac disorder [Unknown]
  - Rash generalised [Unknown]
  - Pain [Unknown]
  - Insomnia [Unknown]
  - Gait disturbance [Unknown]
  - Vomiting [Unknown]
  - Weight decreased [Unknown]
  - Diarrhoea [Unknown]
  - Metrorrhagia [Unknown]
  - Epistaxis [Unknown]
  - Haematemesis [Unknown]
  - Streptococcal sepsis [Unknown]
  - Generalised oedema [Unknown]
  - Oedema [Unknown]
  - Drug interaction [Unknown]
  - Clostridium difficile infection [Unknown]
  - Ascites [Unknown]
